FAERS Safety Report 6615451-4 (Version None)
Quarter: 2010Q1

REPORT INFORMATION
  Report Type: 
  Country: None (occurrence: None)
  Receive Date: 20100305
  Receipt Date: 20100115
  Transmission Date: 20100710
  Serious: Yes (Disabling, Other)
  Sender: FDA-Public Use
  Company Number: US-JNJFOC-20091101702

PATIENT
  Sex: Female

DRUGS (2)
  1. LEVAQUIN [Suspect]
     Indication: URINARY TRACT INFECTION
     Route: 048
     Dates: start: 20091007, end: 20091008
  2. LEVAQUIN [Suspect]
     Route: 048
     Dates: start: 20091007, end: 20091008

REACTIONS (10)
  - ARTHRALGIA [None]
  - DRY EYE [None]
  - EOSINOPHILIA [None]
  - FATIGUE [None]
  - INSOMNIA [None]
  - MONOCYTOSIS [None]
  - MYALGIA [None]
  - PHOTOSENSITIVITY REACTION [None]
  - TENDONITIS [None]
  - VITAMIN D DECREASED [None]
